FAERS Safety Report 8160303-4 (Version None)
Quarter: 2012Q1

REPORT INFORMATION
  Report Type: 
  Country: None (occurrence: None)
  Receive Date: 20120223
  Receipt Date: 20120223
  Transmission Date: 20120608
  Serious: Yes (Other)
  Sender: FDA-Public Use
  Company Number: None

PATIENT
  Age: 61 Year
  Sex: Female
  Weight: 90.718 kg

DRUGS (1)
  1. ALPHAGAN P [Suspect]
     Indication: GLAUCOMA
     Dosage: 1 DROP PER EYE
     Route: 047
     Dates: start: 20110401, end: 20120221

REACTIONS (4)
  - DRUG HYPERSENSITIVITY [None]
  - OCULAR HYPERAEMIA [None]
  - EYE PRURITUS [None]
  - CONJUNCTIVAL FOLLICLES [None]
